FAERS Safety Report 9411718 (Version 1)
Quarter: 2013Q3

REPORT INFORMATION
  Report Type: Spontaneous
  Country: US (occurrence: US)
  Receive Date: 20130722
  Receipt Date: 20130722
  Transmission Date: 20140515
  Serious: No
  Sender: FDA-Public Use
  Company Number: US-COVIDIEN/TYCO HEALTHCARE/MALLINCKRODT-T201301642

PATIENT
  Age: 51 Year
  Sex: Female

DRUGS (10)
  1. MORPHINE EXTENDED-RELEASE [Suspect]
     Indication: PAIN
     Dosage: 100 MG TID
     Dates: start: 201301
  2. MORPHINE [Suspect]
     Dosage: 30 MG QD, USUALLY IN EVENING
     Dates: start: 201301
  3. HYDROMORPHONE [Concomitant]
     Indication: PAIN
     Dosage: 4 MG, 2 TABS TID
  4. GABAPENTIN [Concomitant]
     Indication: NEURALGIA
     Dosage: 300 MG, 3 TABS TID
  5. TEMAZEPAM [Concomitant]
     Indication: SLEEP DISORDER
     Dosage: 30 MG, 2 TABS QHS
  6. TRAZODONE [Concomitant]
     Indication: ANTIDEPRESSANT THERAPY
     Dosage: 100 MG TIDQ
  7. LIPITOR [Concomitant]
     Indication: BLOOD CHOLESTEROL INCREASED
     Dosage: 80 MG TID
  8. CYCLOBENZAPRINE [Concomitant]
     Indication: MUSCLE RELAXANT THERAPY
     Dosage: 10 MG, 2 TABS BID
  9. METHOCARBAMOL [Concomitant]
     Indication: MUSCLE SPASMS
     Dosage: 750 MG, 2 TABS TID
  10. RANITIDINE [Concomitant]
     Indication: GASTROINTESTINAL DISORDER
     Dosage: 150 MG TID

REACTIONS (2)
  - Mobility decreased [Not Recovered/Not Resolved]
  - Pain [Not Recovered/Not Resolved]
